FAERS Safety Report 11591907 (Version 2)
Quarter: 2015Q4

REPORT INFORMATION
  Report Type: Spontaneous
  Country: JP (occurrence: JP)
  Receive Date: 20151005
  Receipt Date: 20151029
  Transmission Date: 20160304
  Serious: Yes (Other)
  Sender: FDA-Public Use
  Company Number: JP-AMGEN-JPNSP2015101443

PATIENT
  Age: 82 Year
  Sex: Female

DRUGS (2)
  1. ALSIODOL [Concomitant]
     Active Substance: ALFACALCIDOL
     Dosage: 0.5 G, QD
     Route: 065
  2. PRALIA [Suspect]
     Active Substance: DENOSUMAB
     Indication: OSTEOPOROSIS
     Dosage: UNK
     Route: 058
     Dates: start: 20150706

REACTIONS (1)
  - Seizure [Recovered/Resolved]
